FAERS Safety Report 5610895-1 (Version None)
Quarter: 2008Q1

REPORT INFORMATION
  Report Type: 
  Country: None (occurrence: None)
  Receive Date: 20080201
  Receipt Date: 20080120
  Transmission Date: 20080703
  Serious: Yes (Hospitalization, Other)
  Sender: FDA-Public Use
  Company Number: US-AMGEN-QUU261560

PATIENT
  Sex: Male

DRUGS (1)
  1. ENBREL [Suspect]
     Indication: RHEUMATOID ARTHRITIS
     Route: 058
     Dates: start: 19991201

REACTIONS (8)
  - ABDOMINAL HERNIA [None]
  - ABDOMINAL WOUND DEHISCENCE [None]
  - ARTHRALGIA [None]
  - COLON CANCER [None]
  - ESCHERICHIA INFECTION [None]
  - HEPATIC NEOPLASM [None]
  - HEPATIC NEOPLASM MALIGNANT [None]
  - POSTOPERATIVE WOUND INFECTION [None]
